FAERS Safety Report 10944198 (Version 1)
Quarter: 2015Q1

REPORT INFORMATION
  Report Type: Spontaneous
  Country: US (occurrence: US)
  Receive Date: 20150323
  Receipt Date: 20150323
  Transmission Date: 20150721
  Serious: Yes (Death)
  Sender: FDA-Public Use
  Company Number: US-CIPLA LTD.-2015US02261

PATIENT

DRUGS (8)
  1. TRAZODONE [Suspect]
     Active Substance: TRAZODONE HYDROCHLORIDE
  2. OXYCODONE [Suspect]
     Active Substance: OXYCODONE
  3. CYCLOBENZAPRINE [Suspect]
     Active Substance: CYCLOBENZAPRINE
  4. ORPHENADRINE [Suspect]
     Active Substance: ORPHENADRINE
  5. ETHANOL [Suspect]
     Active Substance: ALCOHOL
  6. METHYLPHENIDATE [Suspect]
     Active Substance: METHYLPHENIDATE
  7. CITALOPRAM [Suspect]
     Active Substance: CITALOPRAM HYDROBROMIDE
  8. QUETIAPINE [Suspect]
     Active Substance: QUETIAPINE

REACTIONS (1)
  - Drug abuse [Fatal]
